FAERS Safety Report 5502154-2 (Version None)
Quarter: 2007Q4

REPORT INFORMATION
  Report Type: 
  Country: None (occurrence: None)
  Receive Date: 20071030
  Receipt Date: 20071026
  Transmission Date: 20080405
  Serious: Yes (Death)
  Sender: FDA-Public Use
  Company Number: US-JNJFOC-20071007509

PATIENT
  Age: 57 Year
  Sex: Male

DRUGS (4)
  1. INVEGA [Suspect]
     Indication: DRUG USE FOR UNKNOWN INDICATION
     Route: 048
     Dates: start: 20071010, end: 20071018
  2. INVEGA [Suspect]
     Route: 048
     Dates: start: 20071010, end: 20071018
  3. KLONOPIN [Concomitant]
  4. COGENTIN [Concomitant]
     Indication: DRUG USE FOR UNKNOWN INDICATION
     Route: 048
     Dates: start: 20071016

REACTIONS (3)
  - DEATH [None]
  - DRUG INEFFECTIVE [None]
  - MALAISE [None]
